FAERS Safety Report 18982597 (Version 2)
Quarter: 2022Q1

REPORT INFORMATION
  Report Type: Spontaneous
  Country: IN (occurrence: IN)
  Receive Date: 20210308
  Receipt Date: 20220201
  Transmission Date: 20220423
  Serious: Yes (Death)
  Sender: FDA-Public Use
  Company Number: IN-PFIZER INC-2019236808

PATIENT
  Age: 34 Year
  Sex: Male

DRUGS (1)
  1. SUTENT [Suspect]
     Active Substance: SUNITINIB MALATE
     Indication: Metastatic renal cell carcinoma
     Dosage: 37.5 MG, ONCE DAILY, 2 WEEKS ON 1 WEEK OFF
     Route: 048
     Dates: start: 20190603

REACTIONS (2)
  - Death [Fatal]
  - Hepatic lesion [Unknown]

NARRATIVE: CASE EVENT DATE: 20210101
